FAERS Safety Report 5405724-5 (Version None)
Quarter: 2007Q3

REPORT INFORMATION
  Report Type: 
  Country: None (occurrence: None)
  Receive Date: 20070806
  Receipt Date: 20070725
  Transmission Date: 20080115
  Serious: Yes (Other)
  Sender: FDA-Public Use
  Company Number: DE-JNJFOC-20070501986

PATIENT
  Age: 39 Year
  Sex: Female
  Weight: 53 kg

DRUGS (5)
  1. INFLIXIMAB [Suspect]
     Route: 042
  2. INFLIXIMAB [Suspect]
     Indication: ARTHRITIS
     Route: 042
  3. INFLIXIMAB [Suspect]
     Indication: PSORIASIS
     Route: 042
  4. ARCOXIA [Concomitant]
  5. SOLU-DACORTIN [Concomitant]
     Indication: PREMEDICATION

REACTIONS (4)
  - DYSPNOEA [None]
  - HYPERTENSION [None]
  - INFUSION RELATED REACTION [None]
  - JOINT EFFUSION [None]
